FAERS Safety Report 9365385 (Version 1)
Quarter: 2013Q2

REPORT INFORMATION
  Report Type: Spontaneous
  Country: US (occurrence: US)
  Receive Date: 20130625
  Receipt Date: 20130625
  Transmission Date: 20140414
  Serious: No
  Sender: FDA-Public Use
  Company Number: US-B.I. PHARMACEUTICALS,INC./RIDGEFIELD-2013-BI-17630BP

PATIENT
  Age: 71 Year
  Sex: Female
  Weight: 77 kg

DRUGS (3)
  1. SPIRIVA [Suspect]
     Indication: CHRONIC OBSTRUCTIVE PULMONARY DISEASE
     Dosage: 18 MCG
     Route: 055
     Dates: start: 20130610, end: 20130616
  2. SYMBICORT [Concomitant]
     Indication: CHRONIC OBSTRUCTIVE PULMONARY DISEASE
     Dosage: 4 PUF
     Route: 055
     Dates: start: 20130611, end: 20130611
  3. INDERAL [Concomitant]

REACTIONS (3)
  - Pain in extremity [Recovered/Resolved]
  - Breast pain [Recovered/Resolved]
  - Pain in extremity [Recovered/Resolved]
